FAERS Safety Report 4691127-8 (Version None)
Quarter: 2005Q2

REPORT INFORMATION
  Report Type: 
  Country: None (occurrence: None)
  Receive Date: 20050610
  Receipt Date: 20050525
  Transmission Date: 20051028
  Serious: Yes (Hospitalization)
  Sender: FDA-Public Use
  Company Number: DSA_26481_2005

PATIENT
  Age: 25 Year
  Sex: Female

DRUGS (3)
  1. TAVOR [Suspect]
     Dosage: 15 MG ONCE PO
     Route: 048
     Dates: start: 20050521, end: 20050521
  2. ATOSIL [Suspect]
     Dosage: 100 GTT ONCE PO
     Route: 048
     Dates: start: 20050521, end: 20050521
  3. ZOLOFT [Suspect]
     Dosage: 100 MG ONCE PO
     Route: 048
     Dates: start: 20050521, end: 20050521

REACTIONS (3)
  - COORDINATION ABNORMAL [None]
  - INTENTIONAL MISUSE [None]
  - MYDRIASIS [None]
